FAERS Safety Report 9391715 (Version 1)
Quarter: 2013Q3

REPORT INFORMATION
  Report Type: Spontaneous
  Country: GB (occurrence: GB)
  Receive Date: 20130709
  Receipt Date: 20130709
  Transmission Date: 20140515
  Serious: Yes (Disabling)
  Sender: FDA-Public Use
  Company Number: PHHY2013GB070557

PATIENT
  Age: 79 Year
  Sex: Male
  Weight: 83.35 kg

DRUGS (10)
  1. AMIODARONE [Suspect]
     Dates: start: 20130621
  2. RAMIPRIL [Concomitant]
     Dates: start: 20130212
  3. ASPIRIN [Concomitant]
     Dates: start: 20130212
  4. ATORVASTATIN [Concomitant]
     Dates: start: 20130212
  5. ALFUZOSIN [Concomitant]
     Dates: start: 20130410, end: 20130510
  6. BISOPROLOL [Concomitant]
     Dates: start: 20130411, end: 20130418
  7. BISOPROLOL [Concomitant]
     Dates: start: 20130530, end: 20130606
  8. PARACETAMOL [Concomitant]
     Dates: start: 20130418, end: 20130420
  9. WARFARIN SODIUM [Concomitant]
     Dates: start: 20130621, end: 20130623
  10. METOPROLOL TARTRATE [Concomitant]
     Dates: start: 20130621

REACTIONS (2)
  - Thyroiditis acute [Recovering/Resolving]
  - Hyperthyroidism [Recovering/Resolving]
